FAERS Safety Report 6627112-6 (Version None)
Quarter: 2010Q1

REPORT INFORMATION
  Report Type: 
  Country: None (occurrence: None)
  Receive Date: 20100311
  Receipt Date: 20090909
  Transmission Date: 20100710
  Serious: No
  Sender: FDA-Public Use
  Company Number: A0806509A

PATIENT
  Age: 72 Year
  Sex: Female

DRUGS (6)
  1. NICORETTE [Suspect]
     Dates: start: 20090906, end: 20090908
  2. ALPRAZOLAM [Concomitant]
  3. MICARDIS [Concomitant]
  4. CARDIZEM [Concomitant]
  5. PLAVIX [Concomitant]
  6. CLONOPIN [Concomitant]

REACTIONS (2)
  - DRUG ADMINISTRATION ERROR [None]
  - HEART RATE INCREASED [None]
